FAERS Safety Report 9258613 (Version 1)
Quarter: 2013Q1

REPORT INFORMATION
  Report Type: Spontaneous
  Country: US (occurrence: None)
  Receive Date: 20121212
  Receipt Date: 20121212
  Transmission Date: 20140127
  Serious: No
  Sender: FDA-Public Use
  Company Number: 1211USA005537

PATIENT
  Age: 60 Year
  Sex: Female
  Weight: 72.6 kg

DRUGS (12)
  1. VICTRELIS [Suspect]
     Route: 048
  2. RIBAPAK [Suspect]
     Dosage: 1000/DAY
  3. PEGASYS [Suspect]
  4. EFFEXOR XR (VENLAFAXINE HYDROCHLORIDE) [Concomitant]
  5. ZYRTEC (CETIRIZINE HYDROCHLORIDE) [Concomitant]
  6. LISINOPRIL (LISINOPRIL) [Concomitant]
  7. METOPROLOL (METOPROLOL) [Concomitant]
  8. NEXIUM (ESOMEPRAZOLE MAGNESIUM) [Concomitant]
  9. HYDROCODONE /APAP [Concomitant]
  10. CHONDROITIN SULFATE SODIUM (+) HYDROCODONE BITARTRATE) [Concomitant]
  11. ALEVE (NAPROXINE SODIUM) [Concomitant]
  12. VITAMINS (UNSPECIFIED) VITAMINIS (UNSPECIFIED) [Concomitant]

REACTIONS (4)
  - Oral pain [None]
  - Nausea [None]
  - Vomiting [None]
  - Dizziness [None]
